FAERS Safety Report 13451880 (Version 1)
Quarter: 2017Q2

REPORT INFORMATION
  Report Type: Report from Study
  Country: CN (occurrence: CN)
  Receive Date: 20170418
  Receipt Date: 20170418
  Transmission Date: 20170830
  Serious: Yes (Hospitalization)
  Sender: FDA-Public Use
  Company Number: PHHY2017CN057832

PATIENT
  Age: 43 Year
  Sex: Male

DRUGS (1)
  1. AMLODIPINE [Suspect]
     Active Substance: AMLODIPINE BESYLATE
     Indication: HYPERTENSION
     Dosage: UNK UNK, QD (85 MG)
     Route: 048

REACTIONS (16)
  - Blood pressure increased [Unknown]
  - Glucose tolerance impaired [Unknown]
  - Overweight [Unknown]
  - Dizziness [Unknown]
  - Concomitant disease aggravated [Unknown]
  - Hepatic calcification [Unknown]
  - Arthralgia [Unknown]
  - Hepatic steatosis [Unknown]
  - Drug ineffective [Unknown]
  - Condition aggravated [Unknown]
  - Urine abnormality [Unknown]
  - Body temperature decreased [Unknown]
  - Hyperlipidaemia [Unknown]
  - Oedema peripheral [Unknown]
  - Hypertensive nephropathy [Unknown]
  - Splenomegaly [Unknown]

NARRATIVE: CASE EVENT DATE: 201703
